FAERS Safety Report 7041423-4 (Version None)
Quarter: 2010Q4

REPORT INFORMATION
  Report Type: 
  Country: None (occurrence: None)
  Receive Date: 20101013
  Receipt Date: 20101001
  Transmission Date: 20110411
  Serious: Yes (Other)
  Sender: FDA-Public Use
  Company Number: US-ROCHE-691745

PATIENT
  Sex: Male
  Weight: 81.6 kg

DRUGS (3)
  1. ACCUTANE [Suspect]
     Dosage: DOSE: FOR 4 WEEKS
     Route: 048
     Dates: start: 20010109, end: 20010323
  2. CEFTIN [Concomitant]
     Indication: ORAL INFECTION
     Dates: start: 20010301
  3. ADDERALL 10 [Concomitant]

REACTIONS (8)
  - CHAPPED LIPS [None]
  - COLITIS ULCERATIVE [None]
  - CROHN'S DISEASE [None]
  - DEPRESSION [None]
  - HAEMORRHOIDS [None]
  - INFLAMMATORY BOWEL DISEASE [None]
  - INTESTINAL HAEMORRHAGE [None]
  - ORAL INFECTION [None]
